FAERS Safety Report 13519107 (Version 2)
Quarter: 2017Q2

REPORT INFORMATION
  Report Type: Report from Study
  Country: US (occurrence: BR)
  Receive Date: 20170505
  Receipt Date: 20170517
  Transmission Date: 20170830
  Serious: Yes (Hospitalization, Other)
  Sender: FDA-Public Use
  Company Number: US-SUNOVION-2017SUN001875

PATIENT
  Sex: Female
  Weight: 65 kg

DRUGS (1)
  1. INDACATEROL AND GLYCOPYRROLATE [Suspect]
     Active Substance: GLYCOPYRROLATE\INDACATEROL MALEATE
     Indication: PRODUCT USED FOR UNKNOWN INDICATION
     Dosage: 110/50 UG, QD
     Route: 055

REACTIONS (2)
  - Fatigue [Unknown]
  - Pulmonary oedema [Unknown]
